FAERS Safety Report 19804388 (Version 1)
Quarter: 2021Q3

REPORT INFORMATION
  Report Type: Spontaneous
  Country: US (occurrence: US)
  Receive Date: 20210908
  Receipt Date: 20210908
  Transmission Date: 20211014
  Serious: No
  Sender: FDA-Public Use
  Company Number: US-FARMAPROD-202106-0844

PATIENT
  Sex: Female

DRUGS (13)
  1. SIROLIMUS. [Concomitant]
     Active Substance: SIROLIMUS
  2. OXERVATE [Suspect]
     Active Substance: CENEGERMIN-BKBJ
     Indication: NEUROTROPHIC KERATOPATHY
     Route: 047
     Dates: start: 20210426
  3. IMATINIB MESYLATE. [Concomitant]
     Active Substance: IMATINIB MESYLATE
  4. RESTASIS [Concomitant]
     Active Substance: CYCLOSPORINE
     Dosage: DROPERETTE
  5. ACICLOVIR [Concomitant]
     Active Substance: ACYCLOVIR
  6. BIOTIN [Concomitant]
     Active Substance: BIOTIN
  7. AMBIEN [Concomitant]
     Active Substance: ZOLPIDEM TARTRATE
  8. CLOBETASOL PROPIONATE. [Concomitant]
     Active Substance: CLOBETASOL PROPIONATE
  9. EFFEXOR XR [Concomitant]
     Active Substance: VENLAFAXINE HYDROCHLORIDE
     Dosage: EXTENDED RELEASE CAPSULE
  10. SIMVASTATIN. [Concomitant]
     Active Substance: SIMVASTATIN
  11. MULTIVITAMIN [Concomitant]
     Active Substance: VITAMINS
  12. SYNTHROID [Concomitant]
     Active Substance: LEVOTHYROXINE SODIUM
  13. JAKAFI [Concomitant]
     Active Substance: RUXOLITINIB

REACTIONS (5)
  - Eye irritation [Not Recovered/Not Resolved]
  - Ocular hyperaemia [Not Recovered/Not Resolved]
  - Eye pain [Not Recovered/Not Resolved]
  - Erythema of eyelid [Not Recovered/Not Resolved]
  - Eyelid pain [Not Recovered/Not Resolved]
